FAERS Safety Report 8567690-3 (Version None)
Quarter: 2012Q3

REPORT INFORMATION
  Report Type: 
  Country: None (occurrence: None)
  Receive Date: 20120803
  Receipt Date: 20120723
  Transmission Date: 20120928
  Serious: Yes (Life-Threatening, Other)
  Sender: FDA-Public Use
  Company Number: FR-ELI_LILLY_AND_COMPANY-FR201102000555

PATIENT
  Sex: Male

DRUGS (10)
  1. RISPERDAL [Concomitant]
     Dosage: 8 MG, DAILY (1/D)
     Route: 048
     Dates: start: 20101202, end: 20101208
  2. POLYETHYLENE GLYCOL [Concomitant]
     Dosage: 6 D/F, DAILY (1/D)
  3. TERCIAN [Concomitant]
     Indication: PERSECUTORY DELUSION
     Dosage: 25 MG, DAILY (1/D)
     Route: 048
     Dates: start: 20100709, end: 20101202
  4. LOXAPINE HCL [Concomitant]
     Indication: PERSECUTORY DELUSION
     Dosage: 25 MG, 4/D
     Route: 048
     Dates: start: 20101206, end: 20101208
  5. RISPERDAL CONSTA [Concomitant]
     Indication: PERSECUTORY DELUSION
     Dosage: UNK, OTHER ONE INTAKE
     Route: 030
     Dates: start: 20101203, end: 20101203
  6. ZYPREXA [Suspect]
     Indication: PERSECUTORY DELUSION
     Dosage: 7.5 MG, QD
     Route: 048
     Dates: start: 20100709, end: 20101123
  7. ESCITALOPRAM [Concomitant]
     Indication: DEPRESSION
     Dosage: 1 D/F, DAILY (1/D)
     Route: 048
     Dates: start: 20101206, end: 20101208
  8. RISPERDAL [Concomitant]
     Indication: PERSECUTORY DELUSION
     Dosage: 2 MG, 3/D
     Route: 048
     Dates: start: 20101123, end: 20101201
  9. LEPTICUR [Concomitant]
     Indication: EXTRAPYRAMIDAL DISORDER
     Dosage: 10 MG, DAILY (1/D)
     Route: 048
     Dates: start: 20101123, end: 20101208
  10. IMOVANE [Concomitant]

REACTIONS (11)
  - RESPIRATORY DISORDER [None]
  - DEPRESSION [None]
  - ISCHAEMIC STROKE [None]
  - CEREBELLAR SYNDROME [None]
  - MYDRIASIS [None]
  - PULMONARY CONGESTION [None]
  - CENTRAL NERVOUS SYSTEM LESION [None]
  - CEREBELLAR HAEMATOMA [None]
  - DEEP VEIN THROMBOSIS [None]
  - BLADDER DILATATION [None]
  - HYPERTENSION [None]
